FAERS Safety Report 17305516 (Version 1)
Quarter: 2020Q1

REPORT INFORMATION
  Report Type: Spontaneous
  Country: US (occurrence: US)
  Receive Date: 20200123
  Receipt Date: 20200123
  Transmission Date: 20200409
  Serious: No
  Sender: FDA-Public Use
  Company Number: US-AMGEN-USASP2020009924

PATIENT
  Age: 79 Year
  Sex: Female

DRUGS (5)
  1. PROLIA [Suspect]
     Active Substance: DENOSUMAB
     Indication: OSTEOPOROSIS POSTMENOPAUSAL
     Dosage: UNK
     Route: 065
     Dates: start: 2019
  2. CALCIUM [Concomitant]
     Active Substance: CALCIUM
     Indication: BLOOD CALCIUM DECREASED
     Dosage: UNK
  3. CALCIUM [Concomitant]
     Active Substance: CALCIUM
     Dosage: INCREASED DOSE
  4. CALCIUM [Concomitant]
     Active Substance: CALCIUM
     Dosage: UNK UNK, TID
  5. CALCIUM [Concomitant]
     Active Substance: CALCIUM
     Dosage: INCREASED DOSE

REACTIONS (1)
  - Blood calcium decreased [Unknown]
